FAERS Safety Report 8917136 (Version 2)
Quarter: 2013Q2

REPORT INFORMATION
  Report Type: Spontaneous
  Country: US (occurrence: US)
  Receive Date: 20121120
  Receipt Date: 20130519
  Transmission Date: 20140414
  Serious: No
  Sender: FDA-Public Use
  Company Number: US-ALLERGAN-1211739US

PATIENT
  Age: 69 Year
  Sex: Female

DRUGS (5)
  1. LASTACAFT [Suspect]
     Indication: CONJUNCTIVITIS ALLERGIC
     Dosage: 2 GTT, QD
     Route: 047
     Dates: start: 201109, end: 201111
  2. SYNTHROID [Concomitant]
     Indication: HYPOTHYROIDISM
     Dosage: 0.05 MG, QD
     Route: 048
  3. CALCIUM [Concomitant]
     Indication: OSTEOPENIA
     Dosage: UNK UNK, QD
     Route: 048
  4. RESTASIS? [Concomitant]
     Indication: OCULAR SURFACE DISEASE
     Dosage: UNK UNK, BID
     Route: 047
  5. UNPRESERVED EYE DROPS (NOS) [Concomitant]
     Indication: OCULAR SURFACE DISEASE
     Route: 047

REACTIONS (5)
  - Conjunctival oedema [Recovered/Resolved]
  - Blepharitis [Unknown]
  - Conjunctival hyperaemia [Recovered/Resolved]
  - Conjunctival hyperaemia [Recovered/Resolved]
  - Eye pruritus [Unknown]
